FAERS Safety Report 21127824 (Version 2)
Quarter: 2022Q3

REPORT INFORMATION
  Report Type: Spontaneous
  Country: ES (occurrence: ES)
  Receive Date: 20220725
  Receipt Date: 20220728
  Transmission Date: 20221027
  Serious: Yes (Hospitalization, Other)
  Sender: FDA-Public Use
  Company Number: ES-NOVARTISPH-NVSC2022ES166777

PATIENT
  Age: 65 Year
  Sex: Female

DRUGS (20)
  1. ADALIMUMAB [Suspect]
     Active Substance: ADALIMUMAB
     Indication: Pulmonary sarcoidosis
     Dosage: UNK
     Route: 065
  2. ADALIMUMAB [Suspect]
     Active Substance: ADALIMUMAB
     Indication: Cutaneous sarcoidosis
  3. RITUXIMAB [Suspect]
     Active Substance: RITUXIMAB
     Indication: Pulmonary sarcoidosis
     Dosage: UNK
     Route: 065
  4. RITUXIMAB [Suspect]
     Active Substance: RITUXIMAB
     Indication: Cutaneous sarcoidosis
  5. INFLIXIMAB [Suspect]
     Active Substance: INFLIXIMAB
     Indication: Pulmonary sarcoidosis
     Dosage: UNK
     Route: 065
  6. INFLIXIMAB [Suspect]
     Active Substance: INFLIXIMAB
     Indication: Cutaneous sarcoidosis
  7. TACROLIMUS [Suspect]
     Active Substance: TACROLIMUS
     Indication: Pulmonary sarcoidosis
     Dosage: UNK
     Route: 065
  8. TACROLIMUS [Suspect]
     Active Substance: TACROLIMUS
     Indication: Cutaneous sarcoidosis
  9. METHOTREXATE [Suspect]
     Active Substance: METHOTREXATE
     Indication: Pulmonary sarcoidosis
     Dosage: UNK
     Route: 065
  10. METHOTREXATE [Suspect]
     Active Substance: METHOTREXATE
     Indication: Cutaneous sarcoidosis
  11. APREMILAST [Suspect]
     Active Substance: APREMILAST
     Indication: Cutaneous sarcoidosis
     Dosage: 60 MG, QD
     Route: 065
  12. ANAKINRA [Suspect]
     Active Substance: ANAKINRA
     Indication: Pulmonary sarcoidosis
     Dosage: UNK
     Route: 065
  13. ANAKINRA [Suspect]
     Active Substance: ANAKINRA
     Indication: Cutaneous sarcoidosis
  14. PREDNISOLONE [Suspect]
     Active Substance: PREDNISOLONE
     Indication: Cutaneous sarcoidosis
     Dosage: UNK
     Route: 065
  15. PREDNISOLONE [Suspect]
     Active Substance: PREDNISOLONE
     Indication: Pulmonary sarcoidosis
  16. HYDROXYCHLOROQUINE [Suspect]
     Active Substance: HYDROXYCHLOROQUINE
     Indication: Pulmonary sarcoidosis
     Dosage: UNK
     Route: 065
  17. HYDROXYCHLOROQUINE [Suspect]
     Active Substance: HYDROXYCHLOROQUINE
     Indication: Cutaneous sarcoidosis
  18. DOXYCYCLINE [Suspect]
     Active Substance: DOXYCYCLINE
     Indication: Cutaneous sarcoidosis
     Dosage: UNK
     Route: 065
  19. DOXYCYCLINE [Suspect]
     Active Substance: DOXYCYCLINE
     Indication: Pulmonary sarcoidosis
  20. RUXOLITINIB [Concomitant]
     Active Substance: RUXOLITINIB
     Indication: Lymphopenia
     Dosage: UNK
     Route: 065

REACTIONS (6)
  - Cutaneous sarcoidosis [Unknown]
  - Pain [Recovered/Resolved]
  - Skin infection [Recovered/Resolved]
  - Dermatitis infected [Unknown]
  - Disease progression [Not Recovered/Not Resolved]
  - Drug ineffective [Unknown]
